FAERS Safety Report 9742097 (Version 1)
Quarter: 2013Q4

REPORT INFORMATION
  Report Type: Report from Study
  Country: US (occurrence: US)
  Receive Date: 20131210
  Receipt Date: 20131210
  Transmission Date: 20140711
  Serious: Yes (Hospitalization)
  Sender: FDA-Public Use
  Company Number: US-NAPPMUNDI-USA-2013-0109226

PATIENT
  Age: 76 Year
  Sex: Female

DRUGS (2)
  1. OXY CR TAB [Suspect]
     Indication: PRODUCT USED FOR UNKNOWN INDICATION
     Dosage: 40 MG, UNK
     Route: 048
     Dates: start: 20131112
  2. OXY CR TAB [Suspect]
     Dosage: UNK
     Route: 048
     Dates: start: 2003

REACTIONS (3)
  - Blood glucose increased [Unknown]
  - Hypertension [Unknown]
  - Confusional state [Unknown]
